FAERS Safety Report 11260815 (Version 1)
Quarter: 2015Q3

REPORT INFORMATION
  Report Type: Spontaneous
  Country: US (occurrence: US)
  Receive Date: 20150710
  Receipt Date: 20150710
  Transmission Date: 20151125
  Serious: No
  Sender: FDA-Public Use
  Company Number: US-PURDUE-USA-2014-0119313

PATIENT
  Age: 36 Year
  Sex: Female

DRUGS (1)
  1. BUTRANS [Suspect]
     Active Substance: BUPRENORPHINE
     Indication: ANALGESIC THERAPY
     Dosage: 15 UNK, WEEKLY
     Route: 062
     Dates: start: 201401

REACTIONS (5)
  - Micturition urgency [Unknown]
  - Dysuria [Unknown]
  - Weight increased [Unknown]
  - Dry mouth [Unknown]
  - Visual acuity reduced [Unknown]
